FAERS Safety Report 17481996 (Version 2)
Quarter: 2020Q1

REPORT INFORMATION
  Report Type: Spontaneous
  Country: US (occurrence: US)
  Receive Date: 20200302
  Receipt Date: 20200306
  Transmission Date: 20200409
  Serious: No
  Sender: FDA-Public Use
  Company Number: US-JNJFOC-20200238354

PATIENT
  Sex: Male
  Weight: 54.03 kg

DRUGS (1)
  1. ZYRTEC [Suspect]
     Active Substance: CETIRIZINE HYDROCHLORIDE
     Indication: MULTIPLE ALLERGIES
     Dosage: FOR MORE THAN 10 DAYS IN A ROW?LAST ADMIN DATE: 22/FEB/2020
     Route: 048
     Dates: start: 20200131

REACTIONS (1)
  - Drug ineffective [Unknown]
